FAERS Safety Report 9759328 (Version 1)
Quarter: 2013Q4

REPORT INFORMATION
  Report Type: Spontaneous
  Country: US (occurrence: None)
  Receive Date: 20131216
  Receipt Date: 20131216
  Transmission Date: 20140711
  Serious: Yes (Disabling)
  Sender: FDA-Public Use
  Company Number: 163-21880-12041406(0)

PATIENT
  Age: 63 Year
  Sex: Male
  Weight: 113 kg

DRUGS (1)
  1. REVLIMID [Suspect]
     Indication: PLASMA CELL MYELOMA
     Dosage: UNKNOWN, ON AND OFF, PO?10 MG, 1 IN 1 D, PO ?10 MG, 1 IN 1 D, PO? ? ?

REACTIONS (6)
  - Vertigo [None]
  - Hypoaesthesia [None]
  - White blood cell count decreased [None]
  - Haemoglobin decreased [None]
  - Haematocrit decreased [None]
  - Neutrophil count decreased [None]
